FAERS Safety Report 8045080-X (Version None)
Quarter: 2012Q1

REPORT INFORMATION
  Report Type: 
  Country: None (occurrence: None)
  Receive Date: 20120113
  Receipt Date: 20120110
  Transmission Date: 20120608
  Serious: Yes (Death)
  Sender: FDA-Public Use
  Company Number: PHEH2012US000979

PATIENT
  Sex: Male

DRUGS (1)
  1. MYFORTIC [Suspect]
     Indication: HEART TRANSPLANT
     Dosage: 180 MG, BID
     Route: 048
     Dates: start: 20020811

REACTIONS (1)
  - DEATH [None]
